FAERS Safety Report 8420740-7 (Version None)
Quarter: 2012Q2

REPORT INFORMATION
  Report Type: 
  Country: None (occurrence: None)
  Receive Date: 20120608
  Receipt Date: 20120604
  Transmission Date: 20120825
  Serious: No
  Sender: FDA-Public Use
  Company Number: US-PFIZER INC-2012134133

PATIENT
  Sex: Male
  Weight: 28.571 kg

DRUGS (1)
  1. GENOTROPIN [Suspect]
     Indication: BLOOD GROWTH HORMONE
     Dosage: UNK, 1X/DAY
     Dates: start: 20120603

REACTIONS (1)
  - RASH [None]
